APPROVED DRUG PRODUCT: FLUOXETINE HYDROCHLORIDE
Active Ingredient: FLUOXETINE HYDROCHLORIDE
Strength: EQ 40MG BASE
Dosage Form/Route: CAPSULE;ORAL
Application: A202729 | Product #003
Applicant: ACCORD HEALTHCARE INC
Approved: Aug 27, 2020 | RLD: No | RS: No | Type: DISCN